FAERS Safety Report 17371431 (Version 1)
Quarter: 2020Q1

REPORT INFORMATION
  Report Type: Spontaneous
  Country: SE (occurrence: SE)
  Receive Date: 20200205
  Receipt Date: 20200205
  Transmission Date: 20200409
  Serious: Yes (Other)
  Sender: FDA-Public Use
  Company Number: SE-PFIZER INC-2020047258

PATIENT
  Age: 68 Year
  Sex: Male
  Weight: 78 kg

DRUGS (2)
  1. ALVEDON [Concomitant]
     Active Substance: ACETAMINOPHEN
     Dosage: 4000 MG, 1X/DAY
     Dates: start: 20190601
  2. CHAMPIX [Suspect]
     Active Substance: VARENICLINE TARTRATE
     Indication: SMOKING CESSATION THERAPY
     Dosage: 2 MG, 1X/DAY
     Dates: start: 20191113, end: 20200108

REACTIONS (8)
  - Somnolence [Recovering/Resolving]
  - Weight increased [Recovering/Resolving]
  - Libido decreased [Recovering/Resolving]
  - Pollakiuria [Recovering/Resolving]
  - Speech disorder [Recovering/Resolving]
  - Hallucination [Recovering/Resolving]
  - Coordination abnormal [Recovering/Resolving]
  - Nausea [Recovering/Resolving]

NARRATIVE: CASE EVENT DATE: 20191114
